FAERS Safety Report 7064390-6 (Version None)
Quarter: 2010Q4

REPORT INFORMATION
  Report Type: 
  Country: None (occurrence: None)
  Receive Date: 20101027
  Receipt Date: 20101012
  Transmission Date: 20110411
  Serious: Yes (Other)
  Sender: FDA-Public Use
  Company Number: PHEH2005US01799

PATIENT
  Sex: Female
  Weight: 55.102 kg

DRUGS (17)
  1. AREDIA [Suspect]
     Dosage: 90 MG, QW4
     Route: 042
     Dates: start: 20001001, end: 20010701
  2. AREDIA [Suspect]
     Dosage: 90 MG, QW4
     Route: 042
     Dates: start: 20011201, end: 20050101
  3. FOSAMAX [Concomitant]
     Dosage: UNK
     Dates: start: 20050811
  4. NEURONTIN [Concomitant]
     Dosage: 400 MG, BID
  5. TOPROL-XL [Concomitant]
     Dosage: 50 MG, BID
  6. PRILOSEC [Concomitant]
     Dosage: 40 MG, QD
  7. EVISTA [Concomitant]
  8. ZOCOR [Concomitant]
  9. ASPIRIN [Concomitant]
  10. CALCIUM [Concomitant]
  11. VITAMIN D [Concomitant]
  12. CHEMOTHERAPEUTICS NOS [Concomitant]
  13. FERROUS SULFATE [Concomitant]
  14. FOLIC ACID [Concomitant]
  15. GABAPENTIN [Concomitant]
  16. FENTANYL CITRATE [Concomitant]
  17. COUMADIN [Concomitant]

REACTIONS (33)
  - ATELECTASIS [None]
  - BLOOD CREATININE INCREASED [None]
  - BONE DISORDER [None]
  - BREATH ODOUR [None]
  - CATARACT [None]
  - COMPRESSION FRACTURE [None]
  - DENTAL FISTULA [None]
  - DRY EYE [None]
  - DYSGEUSIA [None]
  - HYPERCHOLESTEROLAEMIA [None]
  - INTERVERTEBRAL DISC DEGENERATION [None]
  - INTERVERTEBRAL DISC PROTRUSION [None]
  - KYPHOSIS [None]
  - NASAL POLYPS [None]
  - NASAL SEPTUM DEVIATION [None]
  - ORAL SURGERY [None]
  - OSTEOLYSIS [None]
  - OSTEOMYELITIS [None]
  - OSTEONECROSIS OF JAW [None]
  - OSTEOPENIA [None]
  - OSTEOPOROSIS [None]
  - PAIN IN JAW [None]
  - PLASMACYTOSIS [None]
  - PURULENT DISCHARGE [None]
  - RASH ERYTHEMATOUS [None]
  - RENAL FAILURE [None]
  - RIB FRACTURE [None]
  - SINUS POLYP [None]
  - SOFT TISSUE DISORDER [None]
  - STEM CELL TRANSPLANT [None]
  - TOOTH EXTRACTION [None]
  - UTERINE POLYP [None]
  - VERTEBROPLASTY [None]
